FAERS Safety Report 11528038 (Version 2)
Quarter: 2015Q4

REPORT INFORMATION
  Report Type: Spontaneous
  Country: DE (occurrence: DE)
  Receive Date: 20150921
  Receipt Date: 20151203
  Transmission Date: 20160304
  Serious: Yes (Disabling, Other)
  Sender: FDA-Public Use
  Company Number: DE-AMGEN-DEUSP2015096110

PATIENT
  Age: 62 Year
  Sex: Female
  Weight: 85 kg

DRUGS (2)
  1. ENBREL [Suspect]
     Active Substance: ETANERCEPT
     Indication: PSORIATIC ARTHROPATHY
  2. ENBREL [Suspect]
     Active Substance: ETANERCEPT
     Indication: PSORIASIS
     Dosage: 50 MG, WEEKLY
     Route: 058
     Dates: start: 201101

REACTIONS (2)
  - Visual impairment [Recovering/Resolving]
  - Retinal vascular occlusion [Recovering/Resolving]

NARRATIVE: CASE EVENT DATE: 20150819
